FAERS Safety Report 5119574-0 (Version None)
Quarter: 2006Q4

REPORT INFORMATION
  Report Type: 
  Country: None (occurrence: None)
  Receive Date: 20061003
  Receipt Date: 20060926
  Transmission Date: 20070319
  Serious: Yes (Hospitalization, Other)
  Sender: FDA-Public Use
  Company Number: JP-JNJFOC-20060805161

PATIENT
  Age: 82 Year
  Sex: Female

DRUGS (8)
  1. RISPERDAL [Suspect]
     Route: 048
  2. RISPERDAL [Suspect]
     Route: 048
  3. RISPERDAL [Suspect]
     Route: 048
  4. RISPERDAL [Suspect]
     Indication: DRUG USE FOR UNKNOWN INDICATION
     Route: 048
  5. ONEALFA [Suspect]
     Indication: DRUG USE FOR UNKNOWN INDICATION
     Route: 048
  6. DIOVAN [Suspect]
     Indication: DRUG USE FOR UNKNOWN INDICATION
     Route: 048
  7. NORVASC [Suspect]
     Indication: DRUG USE FOR UNKNOWN INDICATION
     Route: 048
  8. FLUCAM [Suspect]
     Indication: DRUG USE FOR UNKNOWN INDICATION
     Route: 048

REACTIONS (8)
  - DIZZINESS [None]
  - FAECAL INCONTINENCE [None]
  - HEPATITIS [None]
  - INAPPROPRIATE SCHEDULE OF DRUG ADMINISTRATION [None]
  - INSOMNIA [None]
  - MUSCULAR WEAKNESS [None]
  - OEDEMA [None]
  - OVERDOSE [None]
